FAERS Safety Report 7983055-7 (Version None)
Quarter: 2011Q4

REPORT INFORMATION
  Report Type: 
  Country: None (occurrence: None)
  Receive Date: 20111215
  Receipt Date: 20111205
  Transmission Date: 20120403
  Serious: Yes (Other)
  Sender: FDA-Public Use
  Company Number: GB-ABBOTT-11P-167-0850117-00

PATIENT
  Sex: Female

DRUGS (4)
  1. LEFLUNOMIDE [Concomitant]
     Indication: ARTHRITIS
     Route: 048
     Dates: start: 20100101
  2. PREDNISOLONE [Concomitant]
     Indication: ARTHRITIS
     Route: 048
     Dates: start: 20090101
  3. HUMIRA [Suspect]
     Indication: RHEUMATOID ARTHRITIS
     Dosage: 2/52
     Route: 058
  4. HUMIRA [Suspect]

REACTIONS (2)
  - URTICARIA [None]
  - INJECTION SITE REACTION [None]
